FAERS Safety Report 5957390-8 (Version None)
Quarter: 2008Q4

REPORT INFORMATION
  Report Type: 
  Country: None (occurrence: None)
  Receive Date: 20081118
  Receipt Date: 20081112
  Transmission Date: 20090506
  Serious: Yes (Other)
  Sender: FDA-Public Use
  Company Number: US-GENENTECH-271468

PATIENT
  Sex: Female

DRUGS (1)
  1. RAPTIVA [Suspect]
     Indication: PSORIASIS
     Dosage: UNKNOWN

REACTIONS (4)
  - DRUG EXPOSURE DURING PREGNANCY [None]
  - LUNG NEOPLASM [None]
  - PREGNANCY [None]
  - PSORIASIS [None]
